FAERS Safety Report 7108515-2 (Version None)
Quarter: 2010Q4

REPORT INFORMATION
  Report Type: 
  Country: None (occurrence: None)
  Receive Date: 20101117
  Receipt Date: 20100804
  Transmission Date: 20110411
  Serious: No
  Sender: FDA-Public Use
  Company Number: A0874030A

PATIENT
  Age: 67 Year
  Sex: Female

DRUGS (3)
  1. VOTRIENT [Suspect]
     Dosage: 800MG PER DAY
     Route: 048
     Dates: start: 20100803
  2. OTHER MEDICATIONS [Concomitant]
  3. PAIN MEDICATION [Concomitant]

REACTIONS (1)
  - FLATULENCE [None]
